FAERS Safety Report 4559309-3 (Version None)
Quarter: 2005Q1

REPORT INFORMATION
  Report Type: 
  Country: None (occurrence: None)
  Receive Date: 20050124
  Receipt Date: 20050113
  Transmission Date: 20050727
  Serious: Yes (Death, Hospitalization)
  Sender: FDA-Public Use
  Company Number: US-JNJFOC-20040707765

PATIENT
  Age: 41 Year
  Sex: Female

DRUGS (4)
  1. DURAGESIC [Suspect]
     Route: 062
     Dates: start: 20020101, end: 20021231
  2. DURAGESIC [Suspect]
     Route: 062
     Dates: start: 20020101, end: 20021231
  3. VICODIN [Suspect]
     Route: 049
  4. VICODIN [Suspect]
     Indication: PAIN
     Route: 049

REACTIONS (5)
  - CARDIAC ARREST [None]
  - LOSS OF CONSCIOUSNESS [None]
  - OVERDOSE [None]
  - PHARMACEUTICAL PRODUCT COMPLAINT [None]
  - RESPIRATORY DEPRESSION [None]
